FAERS Safety Report 11264357 (Version 1)
Quarter: 2015Q3

REPORT INFORMATION
  Report Type: Spontaneous
  Country: US (occurrence: US)
  Receive Date: 20150713
  Receipt Date: 20150713
  Transmission Date: 20151125
  Serious: No
  Sender: FDA-Public Use
  Company Number: US-JNJFOC-20150614986

PATIENT
  Sex: Female

DRUGS (5)
  1. ESTROGEN PATCH (NOS) [Concomitant]
     Indication: MENOPAUSAL SYMPTOMS
     Route: 062
  2. ESTROGEN PATCH (NOS) [Concomitant]
     Indication: VULVOVAGINAL DRYNESS
     Route: 062
  3. ESTROGEN PATCH (NOS) [Concomitant]
     Indication: CYSTITIS
     Route: 062
  4. LATANOPROST. [Concomitant]
     Active Substance: LATANOPROST
     Indication: GLAUCOMA
     Route: 047
     Dates: start: 201506
  5. SIMPONI [Suspect]
     Active Substance: GOLIMUMAB
     Indication: COLITIS ULCERATIVE
     Route: 058
     Dates: start: 20150618

REACTIONS (3)
  - Headache [Not Recovered/Not Resolved]
  - Eye pain [Not Recovered/Not Resolved]
  - Off label use [Not Recovered/Not Resolved]
